FAERS Safety Report 5535003-7 (Version None)
Quarter: 2007Q4

REPORT INFORMATION
  Report Type: 
  Country: None (occurrence: None)
  Receive Date: 20071205
  Receipt Date: 20071127
  Transmission Date: 20080405
  Serious: Yes (Other)
  Sender: FDA-Public Use
  Company Number: TW-ABBOTT-07P-153-0426083-00

PATIENT
  Age: 70 Year
  Sex: Male

DRUGS (9)
  1. WARFARIN SODIUM [Suspect]
     Indication: DRUG USE FOR UNKNOWN INDICATION
  2. FUROSEMIDE [Concomitant]
     Indication: CARDIAC FAILURE
     Dosage: NOT REPORTED
  3. FUROSEMIDE [Concomitant]
     Indication: HYPERTENSION
  4. CARVEDILOL [Concomitant]
     Indication: CARDIAC FAILURE
     Dosage: NOT REPORTED
  5. CARVEDILOL [Concomitant]
     Indication: HYPERTENSION
  6. METHYLDOPA [Concomitant]
     Indication: CARDIAC FAILURE
     Dosage: NOT REPORTED
  7. METHYLDOPA [Concomitant]
     Indication: HYPERTENSION
  8. LOSARTAN POTASSIUM [Concomitant]
     Indication: CARDIAC FAILURE
     Dosage: NOT REPORTED
  9. LOSARTAN POTASSIUM [Concomitant]
     Indication: HYPERTENSION

REACTIONS (2)
  - CARDIAC TAMPONADE [None]
  - PERICARDIAL HAEMORRHAGE [None]
